FAERS Safety Report 5516825-5 (Version None)
Quarter: 2007Q4

REPORT INFORMATION
  Report Type: 
  Country: None (occurrence: None)
  Receive Date: 20071114
  Receipt Date: 20071106
  Transmission Date: 20080405
  Serious: Yes (Other)
  Sender: FDA-Public Use
  Company Number: JP-AVENTIS-200720270GDDC

PATIENT
  Age: 68 Year
  Sex: Female

DRUGS (4)
  1. CRAVIT [Suspect]
     Indication: PNEUMONIA
     Route: 048
     Dates: start: 20070808, end: 20071017
  2. RIFADIN [Suspect]
     Indication: TUBERCULOSIS
     Route: 048
     Dates: start: 20070808, end: 20071017
  3. ISCOTIN                            /00030201/ [Suspect]
     Indication: TUBERCULOSIS
     Route: 048
     Dates: start: 20070808, end: 20071017
  4. PYRAMIDE [Suspect]
     Dates: start: 20070912, end: 20071017

REACTIONS (1)
  - ACUTE RESPIRATORY FAILURE [None]
